FAERS Safety Report 22142660 (Version 1)
Quarter: 2023Q1

REPORT INFORMATION
  Report Type: Report from Study
  Country: CN (occurrence: None)
  Receive Date: 20230327
  Receipt Date: 20230327
  Transmission Date: 20230418
  Serious: Yes (Hospitalization)
  Sender: FDA-Public Use
  Company Number: CN-ROCHE-3317122

PATIENT
  Age: 61 Year
  Sex: Female

DRUGS (6)
  1. RITUXIMAB [Suspect]
     Active Substance: RITUXIMAB
     Indication: Diffuse large B-cell lymphoma
     Dosage: ON 03/MAY/2017. THE PATIENT RECEIVED THE LAST DOSE OF STUDY MEDICATION RITUXIMAB.
     Route: 065
     Dates: start: 20170227, end: 20170310
  2. LENALIDOMIDE [Suspect]
     Active Substance: LENALIDOMIDE
     Indication: Diffuse large B-cell lymphoma
     Dosage: ON 03/MAY/2017. THE PATIENT RECEIVED THE LAST DOSE OF STUDY MEDICATION BLIND LENALIDOMIDE
     Route: 065
     Dates: start: 20170227, end: 20170509
  3. DOXORUBICIN [Suspect]
     Active Substance: DOXORUBICIN
     Indication: Diffuse large B-cell lymphoma
     Dosage: ON 03/MAY/2017. THE PATIENT RECEIVED THE LAST DOSE OF STUDY MEDICATION DOXORUBICIN
     Route: 065
     Dates: start: 20170227, end: 20170509
  4. CYCLOPHOSPHAMIDE [Suspect]
     Active Substance: CYCLOPHOSPHAMIDE
     Indication: Diffuse large B-cell lymphoma
     Dosage: 1275, ON 03/MAY/2017, SHE RECEIVED THE LAST DOSE OF STUDY MEDICATION CYCLOPHOSPHAMIDE
     Route: 065
     Dates: start: 20170227, end: 20170509
  5. VINCRISTINE [Suspect]
     Active Substance: VINCRISTINE
     Indication: Diffuse large B-cell lymphoma
     Dosage: ON 03/MAY/2017, SHE RECEIVED THE LAST DOSE OF STUDY MEDICATION VINCRISTINE
     Route: 065
     Dates: start: 20170227, end: 20170509
  6. PREDNISONE [Suspect]
     Active Substance: PREDNISONE
     Indication: Diffuse large B-cell lymphoma
     Route: 065
     Dates: start: 20170227, end: 20170507

REACTIONS (2)
  - Agranulocytosis [Recovered/Resolved]
  - Pyrexia [Recovered/Resolved]

NARRATIVE: CASE EVENT DATE: 20170509
